FAERS Safety Report 10799779 (Version 1)
Quarter: 2015Q1

REPORT INFORMATION
  Report Type: Report from Study
  Country: US (occurrence: US)
  Receive Date: 20150216
  Receipt Date: 20150216
  Transmission Date: 20150721
  Serious: No
  Sender: FDA-Public Use
  Company Number: US-ABBVIE-14K-163-1242195-00

PATIENT
  Sex: Male

DRUGS (2)
  1. HUMIRA [Suspect]
     Active Substance: ADALIMUMAB
     Indication: CROHN^S DISEASE
     Dosage: 1ST AND 15TH OF THE MONTH
     Dates: start: 20131004
  2. ASACOL HD [Concomitant]
     Active Substance: MESALAMINE
     Indication: PRODUCT USED FOR UNKNOWN INDICATION

REACTIONS (8)
  - Fatigue [Not Recovered/Not Resolved]
  - Breast mass [Not Recovered/Not Resolved]
  - Abscess drainage [Not Recovered/Not Resolved]
  - Sinusitis [Recovered/Resolved]
  - Benign breast neoplasm [Recovered/Resolved]
  - Feeling hot [Not Recovered/Not Resolved]
  - Inner ear inflammation [Not Recovered/Not Resolved]
  - Inappropriate schedule of drug administration [Not Recovered/Not Resolved]

NARRATIVE: CASE EVENT DATE: 2014
